FAERS Safety Report 21331175 (Version 3)
Quarter: 2025Q2

REPORT INFORMATION
  Report Type: Spontaneous
  Country: FR (occurrence: FR)
  Receive Date: 20220914
  Receipt Date: 20250528
  Transmission Date: 20250717
  Serious: Yes (Other)
  Sender: AUROBINDO
  Company Number: FR-JUVISE-2022008832

PATIENT
  Age: 72 Year
  Sex: Female

DRUGS (8)
  1. ANASTROZOLE [Suspect]
     Active Substance: ANASTROZOLE
     Indication: Breast cancer
     Dosage: 1 DOSAGE FORM, ONCE A DAY
     Route: 048
     Dates: start: 201508, end: 201808
  2. FLUOROURACIL [Concomitant]
     Active Substance: FLUOROURACIL
     Indication: Breast cancer
     Route: 065
     Dates: start: 201501, end: 201506
  3. EPIRUBICIN [Concomitant]
     Active Substance: EPIRUBICIN
     Indication: Breast cancer
     Route: 065
     Dates: start: 201501, end: 201506
  4. CYCLOPHOSPHAMIDE [Concomitant]
     Active Substance: CYCLOPHOSPHAMIDE
     Indication: Breast cancer
     Route: 065
     Dates: start: 201501, end: 201506
  5. TAXOL [Concomitant]
     Active Substance: PACLITAXEL
     Indication: Breast cancer
     Route: 065
     Dates: start: 201501, end: 201506
  6. ALPELISIB [Concomitant]
     Active Substance: ALPELISIB
     Indication: Breast cancer
     Route: 065
     Dates: start: 20200921
  7. INSULIN NOS [Concomitant]
     Active Substance: INSULIN NOS
     Indication: Product used for unknown indication
     Route: 042
  8. INSULIN NOS [Concomitant]
     Active Substance: INSULIN NOS
     Route: 058

REACTIONS (1)
  - Metastases to liver [Recovered/Resolved]

NARRATIVE: CASE EVENT DATE: 20180101
